FAERS Safety Report 12220780 (Version 2)
Quarter: 2016Q2

REPORT INFORMATION
  Report Type: Report from Study
  Country: IT (occurrence: IT)
  Receive Date: 20160330
  Receipt Date: 20160401
  Transmission Date: 20160815
  Serious: Yes (Disabling)
  Sender: FDA-Public Use
  Company Number: IT-B.I. PHARMACEUTICALS,INC./RIDGEFIELD-2016-BI-18120BI

PATIENT
  Age: 64 Year
  Sex: Male
  Weight: 105 kg

DRUGS (4)
  1. BIBF 1120 [Suspect]
     Active Substance: NINTEDANIB
     Indication: IDIOPATHIC PULMONARY FIBROSIS
     Dosage: DOSE PER APP/DAILY DOSE: 100MG X2
     Route: 048
     Dates: start: 20130617
  2. IVABRADINE [Concomitant]
     Active Substance: IVABRADINE
     Indication: MYOCARDIAL INFARCTION
     Dosage: 7.5 MG
     Route: 050
     Dates: start: 200808
  3. LANSOPRAZOLE. [Concomitant]
     Active Substance: LANSOPRAZOLE
     Indication: GASTROOESOPHAGEAL REFLUX DISEASE
     Dosage: 20 MG
     Route: 065
     Dates: start: 2008
  4. BIBF 1120 [Suspect]
     Active Substance: NINTEDANIB
     Dosage: 200 MG
     Route: 048
     Dates: start: 20141201

REACTIONS (1)
  - Chronic respiratory failure [Not Recovered/Not Resolved]

NARRATIVE: CASE EVENT DATE: 20160223
